FAERS Safety Report 6154253-2 (Version None)
Quarter: 2009Q2

REPORT INFORMATION
  Report Type: 
  Country: None (occurrence: None)
  Receive Date: 20090414
  Receipt Date: 20090330
  Transmission Date: 20091009
  Serious: Yes (Hospitalization)
  Sender: FDA-Public Use
  Company Number: DE-GENENTECH-280561

PATIENT
  Sex: Female

DRUGS (8)
  1. AVASTIN [Suspect]
     Indication: BREAST CANCER
     Dosage: 810 MG, Q3W
     Route: 042
     Dates: start: 20081202
  2. AVASTIN [Suspect]
     Dosage: 780 MG, Q3W
     Route: 042
  3. EPIRUBICIN [Suspect]
     Indication: BREAST CANCER
     Dosage: 143 MG, Q3W
     Route: 042
     Dates: start: 20081202
  4. CYCLOPHOSPHAMIDE [Suspect]
     Indication: BREAST CANCER
     Dosage: 951 MG, Q3W
     Route: 042
     Dates: start: 20081202
  5. DOCETAXEL [Suspect]
     Indication: BREAST CANCER
     Dosage: 156 MG, Q3W
     Route: 042
     Dates: start: 20090224
  6. DOCETAXEL [Suspect]
     Dosage: UNK
  7. NEUPOGEN [Concomitant]
     Indication: DRUG USE FOR UNKNOWN INDICATION
     Dosage: UNK
  8. ALVESCO [Concomitant]
     Indication: DRUG USE FOR UNKNOWN INDICATION
     Dosage: UNK

REACTIONS (1)
  - GENERAL PHYSICAL HEALTH DETERIORATION [None]
